FAERS Safety Report 23890353 (Version 1)
Quarter: 2024Q2

REPORT INFORMATION
  Report Type: Spontaneous
  Country: US (occurrence: US)
  Receive Date: 20240523
  Receipt Date: 20240523
  Transmission Date: 20240715
  Serious: Yes (Hospitalization, Other)
  Sender: FDA-Public Use
  Company Number: US-BAYER-2024A070654

PATIENT
  Sex: Female

DRUGS (8)
  1. BAYER LOW DOSE [Suspect]
     Active Substance: ASPIRIN
     Indication: Migraine
     Dosage: 81 MG, QD
     Route: 048
     Dates: start: 202308
  2. NURTEC ODT [Concomitant]
     Active Substance: RIMEGEPANT SULFATE
     Indication: Migraine
     Dosage: 75 MG, PRN
     Route: 048
     Dates: start: 2021
  3. BOTOX [Concomitant]
     Active Substance: ONABOTULINUMTOXINA
     Indication: Migraine
     Dosage: UNK UNK, Q3MON
     Dates: start: 2018
  4. PROMETHAZINE [Concomitant]
     Active Substance: PROMETHAZINE HYDROCHLORIDE
     Indication: Migraine
     Dosage: 25 MG, PRN
  5. BENADRYL [Concomitant]
     Active Substance: DIPHENHYDRAMINE HYDROCHLORIDE
     Indication: Migraine
     Dosage: 50 MG, PRN
  6. TYLENOL [Concomitant]
     Active Substance: ACETAMINOPHEN
     Indication: Migraine
     Dosage: 500 MG, PRN
  7. IMITREX [Concomitant]
     Active Substance: SUMATRIPTAN SUCCINATE
     Indication: Migraine
     Dosage: UNK UNK, PRN
  8. MAXALT [Concomitant]
     Active Substance: RIZATRIPTAN BENZOATE
     Indication: Migraine
     Dosage: UNK UNK, PRN

REACTIONS (4)
  - Complication of pregnancy [None]
  - Postpartum disorder [None]
  - Maternal exposure during pregnancy [None]
  - Product use in unapproved indication [None]
